FAERS Safety Report 19442000 (Version 2)
Quarter: 2021Q2

REPORT INFORMATION
  Report Type: Spontaneous
  Country: JP (occurrence: JP)
  Receive Date: 20210621
  Receipt Date: 20210630
  Transmission Date: 20210717
  Serious: Yes (Death, Hospitalization)
  Sender: FDA-Public Use
  Company Number: JP-ELI_LILLY_AND_COMPANY-JP202106006561

PATIENT
  Age: 66 Year
  Sex: Male

DRUGS (5)
  1. BOSENTAN HYDRATE [Suspect]
     Active Substance: BOSENTAN
     Indication: PULMONARY ARTERIAL HYPERTENSION
     Dosage: 62.5 MG, DAILY
     Route: 048
  2. ADCIRCA [Suspect]
     Active Substance: TADALAFIL
     Indication: PULMONARY ARTERIAL HYPERTENSION
     Dosage: 40 MG, DAILY
     Route: 048
  3. BOSENTAN HYDRATE [Suspect]
     Active Substance: BOSENTAN
     Dosage: 250 MG, DAILY
     Route: 048
  4. BERAPROST SODIUM [Concomitant]
     Active Substance: BERAPROST SODIUM
     Indication: PULMONARY ARTERIAL HYPERTENSION
  5. BOSENTAN HYDRATE [Suspect]
     Active Substance: BOSENTAN
     Dosage: UNK UNK, UNKNOWN
     Route: 048

REACTIONS (5)
  - Pulmonary renal syndrome [Fatal]
  - Pneumonia [Unknown]
  - Glomerulonephritis rapidly progressive [Fatal]
  - Ileus [Unknown]
  - Diarrhoea [Unknown]
